FAERS Safety Report 5504408-2 (Version None)
Quarter: 2007Q4

REPORT INFORMATION
  Report Type: 
  Country: None (occurrence: None)
  Receive Date: 20071101
  Receipt Date: 20071022
  Transmission Date: 20080405
  Serious: Yes (Hospitalization)
  Sender: FDA-Public Use
  Company Number: FR-PFIZER INC-2007080473

PATIENT
  Sex: Female
  Weight: 60 kg

DRUGS (15)
  1. LYRICA [Suspect]
     Indication: NEURALGIA
  2. LYRICA [Suspect]
     Indication: PAIN
  3. LYRICA [Suspect]
     Indication: SCIATICA
  4. NEURONTIN [Suspect]
  5. MONTELUKAST SODIUM [Concomitant]
  6. NASACORT [Concomitant]
  7. ACTISKENAN [Concomitant]
  8. RIVOTRIL [Concomitant]
  9. MEPRONIZINE [Concomitant]
  10. PROZAC [Concomitant]
  11. OMEPRAZOLE [Concomitant]
  12. DIAZEPAM [Concomitant]
  13. METOPIMAZINE [Concomitant]
  14. POTASSIUM BICARBONATE [Concomitant]
  15. STERCULIA [Concomitant]

REACTIONS (11)
  - ABDOMINAL PAIN UPPER [None]
  - APNOEA [None]
  - ARTERIOSCLEROSIS [None]
  - BALANCE DISORDER [None]
  - COMA [None]
  - ECZEMA [None]
  - NAUSEA [None]
  - NEPHROLITHIASIS [None]
  - PSORIASIS [None]
  - RASH PUSTULAR [None]
  - SYNCOPE [None]
